FAERS Safety Report 6256585-6 (Version None)
Quarter: 2009Q3

REPORT INFORMATION
  Report Type: 
  Country: None (occurrence: None)
  Receive Date: 20090706
  Receipt Date: 20090630
  Transmission Date: 20100115
  Serious: Yes (Hospitalization)
  Sender: FDA-Public Use
  Company Number: FR-BAYER-200924613GPV

PATIENT
  Age: 34 Year
  Sex: Female

DRUGS (3)
  1. IZILOX [Suspect]
     Indication: DRUG USE FOR UNKNOWN INDICATION
     Route: 065
     Dates: start: 20090101, end: 20090101
  2. IZILOX [Concomitant]
     Indication: TUBERCULOSIS
     Dates: start: 20090101, end: 20090101
  3. RIFATER [Concomitant]
     Indication: TUBERCULOSIS

REACTIONS (2)
  - ANAEMIA HAEMOLYTIC AUTOIMMUNE [None]
  - APLASIA PURE RED CELL [None]
